FAERS Safety Report 21782574 (Version 1)
Quarter: 2022Q4

REPORT INFORMATION
  Report Type: Other
  Country: SE (occurrence: None)
  Receive Date: 20221227
  Receipt Date: 20221227
  Transmission Date: 20230113
  Serious: Yes (Other)
  Sender: FDA-Public Use
  Company Number: SE-DEXPHARM-20222696

PATIENT
  Age: 69 Year
  Sex: Male

DRUGS (3)
  1. DICLOFENAC [Suspect]
     Active Substance: DICLOFENAC
     Dosage: 50 MG DICLOFENAC TABLET AT 10 PM THE EVENING
  2. LEVOTHYROXINE [Concomitant]
     Active Substance: LEVOTHYROXINE
     Dosage: LEVOTHYROXINE 150 UG DAILY
  3. ASPIRIN [Suspect]
     Active Substance: ASPIRIN
     Dosage: 1 TABLET ACETYLSALICYLIC ACID 500 MG IN THE EARLY MORNING

REACTIONS (1)
  - Hypoglycaemia [Recovered/Resolved]
